FAERS Safety Report 19027412 (Version 2)
Quarter: 2023Q4

REPORT INFORMATION
  Report Type: Spontaneous
  Country: FR (occurrence: FR)
  Receive Date: 20210318
  Receipt Date: 20231129
  Transmission Date: 20240110
  Serious: Yes (Hospitalization, Other)
  Sender: FDA-Public Use
  Company Number: FR-JNJFOC-20210328722

PATIENT
  Age: 35 Year
  Sex: Female
  Weight: 55 kg

DRUGS (6)
  1. REMICADE [Suspect]
     Active Substance: INFLIXIMAB
     Indication: Crohn^s disease
     Route: 041
     Dates: start: 200506, end: 200703
  2. REMICADE [Suspect]
     Active Substance: INFLIXIMAB
     Route: 041
     Dates: start: 200807, end: 201001
  3. REMICADE [Suspect]
     Active Substance: INFLIXIMAB
     Dosage: 6 AND 12 WEEKS AS A FUNCTION OF THE PATIENTS OBSERVANCE OF THE TREATMENT
     Route: 041
     Dates: start: 200903
  4. REMICADE [Suspect]
     Active Substance: INFLIXIMAB
     Dosage: TREATMENT CYCLES INCREASED TO EVERY 8 WEEKS
     Route: 041
     Dates: start: 201806
  5. HUMIRA [Concomitant]
     Active Substance: ADALIMUMAB
     Indication: Crohn^s disease
     Route: 065
     Dates: start: 200703, end: 200710
  6. CIMZIA [Concomitant]
     Active Substance: CERTOLIZUMAB PEGOL
     Indication: Crohn^s disease
     Route: 065
     Dates: start: 200710, end: 200806

REACTIONS (11)
  - Rheumatoid arthritis [Unknown]
  - Intestinal stenosis [Unknown]
  - Anal fistula [Unknown]
  - Malnutrition [Unknown]
  - Crohn^s disease [Unknown]
  - Anal abscess [Unknown]
  - Exposure during pregnancy [Recovered/Resolved]
  - Off label use [Unknown]
  - Product use issue [Unknown]
  - Therapeutic response decreased [Unknown]
  - Treatment noncompliance [Unknown]

NARRATIVE: CASE EVENT DATE: 20070301
